FAERS Safety Report 6537965-8 (Version None)
Quarter: 2010Q1

REPORT INFORMATION
  Report Type: 
  Country: None (occurrence: None)
  Receive Date: 20100112
  Receipt Date: 20100112
  Transmission Date: 20100710
  Serious: No
  Sender: FDA-Public Use
  Company Number: None

PATIENT
  Sex: Female
  Weight: 53.5244 kg

DRUGS (1)
  1. AMLODIPINE BESYLATE [Suspect]
     Dosage: 1 TABLET 10 MG A DAY
     Dates: start: 20090301, end: 20091201

REACTIONS (6)
  - BALANCE DISORDER [None]
  - DRY MOUTH [None]
  - FATIGUE [None]
  - MYALGIA [None]
  - OEDEMA PERIPHERAL [None]
  - RASH [None]
